FAERS Safety Report 24230005 (Version 3)
Quarter: 2024Q4

REPORT INFORMATION
  Report Type: Report from Study
  Country: CA (occurrence: CA)
  Receive Date: 20240820
  Receipt Date: 20241106
  Transmission Date: 20250114
  Serious: Yes (Other)
  Sender: JOHNSON AND JOHNSON
  Company Number: CA-JNJFOC-20240210185

PATIENT
  Age: 52 Year
  Sex: Female
  Weight: 73 kg

DRUGS (3)
  1. REMICADE [Suspect]
     Active Substance: INFLIXIMAB
     Indication: Crohn^s disease
     Dosage: 730 MILLIGRAMS
     Route: 041
     Dates: start: 20190702, end: 20241023
  2. REMICADE [Suspect]
     Active Substance: INFLIXIMAB
     Route: 041
     Dates: start: 20190702
  3. REMICADE [Suspect]
     Active Substance: INFLIXIMAB
     Route: 041
     Dates: start: 20190702, end: 20240815

REACTIONS (7)
  - Crohn^s disease [Not Recovered/Not Resolved]
  - Pyoderma gangrenosum [Unknown]
  - Infection [Recovered/Resolved]
  - Influenza [Not Recovered/Not Resolved]
  - Upper respiratory tract infection [Unknown]
  - Illness [Recovering/Resolving]
  - Drug level below therapeutic [Unknown]

NARRATIVE: CASE EVENT DATE: 20230901
